FAERS Safety Report 12601985 (Version 3)
Quarter: 2016Q4

REPORT INFORMATION
  Report Type: Report from Study
  Country: CA (occurrence: CA)
  Receive Date: 20160728
  Receipt Date: 20161006
  Transmission Date: 20170207
  Serious: Yes (Hospitalization)
  Sender: FDA-Public Use
  Company Number: CA-TOLMAR, INC.-2016CA007152

PATIENT

DRUGS (1)
  1. ELIGARD [Suspect]
     Active Substance: LEUPROLIDE ACETATE
     Indication: PROSTATE CANCER
     Dosage: 30 MG, 4 MONTHS
     Route: 058
     Dates: start: 2013

REACTIONS (4)
  - Cardiac failure [Recovered/Resolved]
  - Asthenia [Unknown]
  - Weight decreased [Unknown]
  - Pulmonary oedema [Recovered/Resolved]
